FAERS Safety Report 6120092-1 (Version None)
Quarter: 2009Q1

REPORT INFORMATION
  Report Type: 
  Country: None (occurrence: None)
  Receive Date: 20090316
  Receipt Date: 20090309
  Transmission Date: 20090719
  Serious: Yes (Death)
  Sender: FDA-Public Use
  Company Number: DE-ABBOTT-09P-062-0561145-00

PATIENT
  Age: 48 Year
  Sex: Male

DRUGS (5)
  1. VALPROATE SODIUM [Suspect]
     Indication: EPILEPSY
     Route: 048
  2. GABAPENTIN [Suspect]
     Indication: EPILEPSY
     Route: 048
  3. PROMETHAZINE [Suspect]
     Indication: BRAIN INJURY
     Route: 048
  4. TRI-THIAZID [Suspect]
     Indication: OEDEMA
     Route: 048
  5. RISPERDAL [Suspect]
     Indication: BRAIN INJURY
     Route: 048

REACTIONS (3)
  - BONE MARROW FAILURE [None]
  - LEUKOPENIA [None]
  - THROMBOCYTOPENIA [None]
